FAERS Safety Report 4445233-3 (Version None)
Quarter: 2004Q3

REPORT INFORMATION
  Report Type: 
  Country: None (occurrence: None)
  Receive Date: 20040819
  Receipt Date: 20040819
  Transmission Date: 20050211
  Serious: Yes (Disabling, Other)
  Sender: FDA-Public Use
  Company Number: 2004023767

PATIENT
  Age: 68 Year
  Sex: Female
  Weight: 65.7716 kg

DRUGS (7)
  1. NORVASC [Suspect]
     Indication: HYPERTENSION
     Dosage: ORAL
     Route: 048
     Dates: start: 19940101
  2. NIFEDIPINE [Suspect]
     Indication: ILL-DEFINED DISORDER
     Dosage: 60 MG, DAILY
     Dates: start: 20040314, end: 20040314
  3. NIFEDIPINE [Suspect]
     Indication: ILL-DEFINED DISORDER
     Dosage: 60 MG, DAILY
     Dates: start: 20040318
  4. METOPROLOL SUCCINATE [Concomitant]
  5. LOSARTAN POTASSIUM [Concomitant]
  6. FUROSEMIDE [Concomitant]
  7. DYAZIDE [Concomitant]

REACTIONS (8)
  - ATRIAL FIBRILLATION [None]
  - BLOOD PRESSURE INCREASED [None]
  - EMOTIONAL DISTRESS [None]
  - EYE SWELLING [None]
  - MENTAL IMPAIRMENT [None]
  - MYOCARDIAL INFARCTION [None]
  - OEDEMA PERIPHERAL [None]
  - STOMACH DISCOMFORT [None]
